FAERS Safety Report 18901970 (Version 6)
Quarter: 2021Q2

REPORT INFORMATION
  Report Type: Spontaneous
  Country: US (occurrence: US)
  Receive Date: 20210216
  Receipt Date: 20210521
  Transmission Date: 20210717
  Serious: Yes (Hospitalization, Other)
  Sender: FDA-Public Use
  Company Number: US-PFIZER INC-2021123140

PATIENT
  Age: 56 Year
  Sex: Male

DRUGS (4)
  1. INLYTA [Suspect]
     Active Substance: AXITINIB
     Dosage: 5 MG
     Dates: start: 20200608, end: 2021
  2. INLYTA [Suspect]
     Active Substance: AXITINIB
     Dosage: 5 MG, 2X/DAY
     Route: 048
     Dates: start: 20210125
  3. INLYTA [Suspect]
     Active Substance: AXITINIB
     Dosage: 3 MG, 2X/DAY (1MG WAS DECREASED FROM 3 TABLETS TWICE DAILY TO 2 TABLETS TWICE DAILY)
     Dates: start: 20210126
  4. INLYTA [Suspect]
     Active Substance: AXITINIB
     Dosage: 2 MG, 2X/DAY (1MG WAS DECREASED FROM 3 TABLETS TWICE DAILY TO 2 TABLETS TWICE DAILY)
     Dates: end: 20210415

REACTIONS (10)
  - Hypotension [Unknown]
  - Diarrhoea [Unknown]
  - Fatigue [Unknown]
  - Blood pressure fluctuation [Unknown]
  - Dysphonia [Unknown]
  - Constipation [Unknown]
  - Nausea [Unknown]
  - Sepsis [Unknown]
  - Thirst decreased [Unknown]
  - Decreased appetite [Unknown]

NARRATIVE: CASE EVENT DATE: 20210129
